FAERS Safety Report 20212105 (Version 4)
Quarter: 2022Q2

REPORT INFORMATION
  Report Type: Report from Study
  Country: IN (occurrence: IN)
  Receive Date: 20211221
  Receipt Date: 20220513
  Transmission Date: 20220721
  Serious: Yes (Other)
  Sender: FDA-Public Use
  Company Number: IN-NOVARTISPH-NVSC2021IN291767

PATIENT
  Age: 29 Year
  Sex: Female

DRUGS (3)
  1. RIBOCICLIB [Suspect]
     Active Substance: RIBOCICLIB
     Indication: Breast cancer metastatic
     Dosage: 600 MG, QD
     Route: 065
     Dates: start: 202012, end: 20211129
  2. RIBOCICLIB [Suspect]
     Active Substance: RIBOCICLIB
     Dosage: 600 MG, QD
     Route: 065
     Dates: start: 20211212, end: 202203
  3. RIBOCICLIB [Suspect]
     Active Substance: RIBOCICLIB
     Dosage: 600 MG, QD
     Route: 065

REACTIONS (13)
  - Dengue fever [Recovered/Resolved]
  - Platelet count decreased [Recovered/Resolved]
  - Hepatomegaly [Unknown]
  - Metastases to bone [Unknown]
  - Metastases to liver [Unknown]
  - Peroneal nerve palsy [Recovering/Resolving]
  - Pain [Recovering/Resolving]
  - Gastritis [Not Recovered/Not Resolved]
  - Anxiety [Not Recovered/Not Resolved]
  - Arthralgia [Unknown]
  - Fatigue [Recovering/Resolving]
  - Vomiting [Not Recovered/Not Resolved]
  - Drug ineffective [Not Recovered/Not Resolved]

NARRATIVE: CASE EVENT DATE: 20211101
